FAERS Safety Report 18531325 (Version 1)
Quarter: 2020Q4

REPORT INFORMATION
  Report Type: Spontaneous
  Country: US (occurrence: US)
  Receive Date: 20201122
  Receipt Date: 20201122
  Transmission Date: 20210114
  Serious: No
  Sender: FDA-Public Use
  Company Number: US-PURDUE-USA-2020-0151727

PATIENT
  Sex: Male

DRUGS (1)
  1. HYSINGLA ER [Suspect]
     Active Substance: HYDROCODONE BITARTRATE
     Indication: PRODUCT USED FOR UNKNOWN INDICATION
     Dosage: 80 MG, TID
     Route: 048
     Dates: start: 2015, end: 2017

REACTIONS (6)
  - Nausea [Unknown]
  - Off label use [Unknown]
  - Amnesia [Unknown]
  - Gait disturbance [Unknown]
  - Drug ineffective [Unknown]
  - Dizziness [Unknown]
